FAERS Safety Report 10918848 (Version 2)
Quarter: 2015Q2

REPORT INFORMATION
  Report Type: Spontaneous
  Country: US (occurrence: US)
  Receive Date: 20150316
  Receipt Date: 20150611
  Transmission Date: 20150821
  Serious: No
  Sender: FDA-Public Use
  Company Number: US-ASTELLAS-2015US002774

PATIENT
  Age: 86 Year
  Sex: Male

DRUGS (1)
  1. XTANDI [Suspect]
     Active Substance: ENZALUTAMIDE
     Indication: PRODUCT USED FOR UNKNOWN INDICATION
     Dosage: 80-160 MG, UNKNOWN FREQ.
     Route: 048
     Dates: end: 20150204

REACTIONS (5)
  - Oesophagitis [Not Recovered/Not Resolved]
  - Dysphagia [Not Recovered/Not Resolved]
  - Inappropriate schedule of drug administration [Unknown]
  - Incorrect dosage administered [Unknown]
  - Pain [Not Recovered/Not Resolved]
